FAERS Safety Report 17069849 (Version 1)
Quarter: 2019Q4

REPORT INFORMATION
  Report Type: Spontaneous
  Country: JP (occurrence: JP)
  Receive Date: 20191125
  Receipt Date: 20191125
  Transmission Date: 20200122
  Serious: Yes (Hospitalization)
  Sender: FDA-Public Use
  Company Number: JP-TEVA-2019-JP-1142555

PATIENT
  Age: 69 Year
  Sex: Male

DRUGS (3)
  1. FLUOROURACIL. [Suspect]
     Active Substance: FLUOROURACIL
     Indication: OESOPHAGEAL SQUAMOUS CELL CARCINOMA STAGE IV
     Dosage: FIRST COURSE , DCF COMBINATION THERAPY; FLUOROURACIL ON DAYS 1 - 5, BIWEEKLY
     Route: 065
  2. CISPLATIN. [Suspect]
     Active Substance: CISPLATIN
     Indication: OESOPHAGEAL SQUAMOUS CELL CARCINOMA STAGE IV
     Dosage: FIRST COURSE, DCF COMBINATION THERAPY; CISPLATIN ON DAY 1, BIWEEKLY
     Route: 065
  3. DOCETAXEL. [Suspect]
     Active Substance: DOCETAXEL
     Indication: OESOPHAGEAL SQUAMOUS CELL CARCINOMA STAGE IV
     Dosage: FIRST COURSE ,DCF COMBINATION THERAPY; DOCETAXEL ON DAY 1, BIWEEKLY
     Route: 065

REACTIONS (5)
  - Drug hypersensitivity [Unknown]
  - Syncope [Recovered/Resolved]
  - Myocardial ischaemia [Recovered/Resolved]
  - Vasospasm [Recovered/Resolved]
  - Atrial fibrillation [Recovered/Resolved]
